FAERS Safety Report 17647267 (Version 1)
Quarter: 2020Q2

REPORT INFORMATION
  Report Type: Spontaneous
  Country: US (occurrence: US)
  Receive Date: 20200408
  Receipt Date: 20200408
  Transmission Date: 20200713
  Serious: No
  Sender: FDA-Public Use
  Company Number: US-OPTINOSE US, INC-2020OPT000123

PATIENT
  Age: 46 Year
  Sex: Female

DRUGS (2)
  1. CARBINOXAMINE [Concomitant]
     Active Substance: CARBINOXAMINE
     Indication: PRODUCT USED FOR UNKNOWN INDICATION
     Route: 065
  2. XHANCE [Suspect]
     Active Substance: FLUTICASONE PROPIONATE
     Indication: SEASONAL ALLERGY
     Route: 045
     Dates: start: 202001

REACTIONS (3)
  - Foot operation [Unknown]
  - Product dose omission [Unknown]
  - Product use in unapproved indication [Unknown]

NARRATIVE: CASE EVENT DATE: 20200203
